FAERS Safety Report 9456358 (Version 1)
Quarter: 2013Q3

REPORT INFORMATION
  Report Type: Spontaneous
  Country: US (occurrence: US)
  Receive Date: 20130813
  Receipt Date: 20130813
  Transmission Date: 20140515
  Serious: Yes (Death)
  Sender: FDA-Public Use
  Company Number: US-GLAXOSMITHKLINE-B0914958A

PATIENT
  Age: 77 Year
  Sex: Male

DRUGS (7)
  1. MELPHALAN [Suspect]
     Indication: PLASMA CELL MYELOMA
     Route: 065
  2. PREDNISONE [Suspect]
     Indication: PLASMA CELL MYELOMA
     Route: 065
  3. THALIDOMIDE [Suspect]
     Indication: PLASMA CELL MYELOMA
     Route: 065
  4. REVLIMID [Suspect]
     Indication: PLASMA CELL MYELOMA
     Route: 065
  5. DEXAMETHASONE [Suspect]
     Indication: PLASMA CELL MYELOMA
     Route: 065
  6. VELCADE [Suspect]
     Indication: PLASMA CELL MYELOMA
     Route: 065
  7. CYCLOPHOSPHAMIDE [Suspect]
     Indication: PLASMA CELL MYELOMA
     Route: 065

REACTIONS (1)
  - Refractory cytopenia with multilineage dysplasia [Fatal]
